FAERS Safety Report 16444330 (Version 2)
Quarter: 2019Q3

REPORT INFORMATION
  Report Type: Spontaneous
  Country: US (occurrence: US)
  Receive Date: 20190618
  Receipt Date: 20190930
  Transmission Date: 20191004
  Serious: Yes (Hospitalization, Other)
  Sender: FDA-Public Use
  Company Number: US-009507513-1906USA004373

PATIENT
  Age: 30 Year
  Sex: Male

DRUGS (2)
  1. COBICISTAT (+) ELVITEGRAVIR (+) EMTRICITABINE (+) TENOFOVIR ALAFENAMID [Concomitant]
     Indication: HIV INFECTION
     Dosage: SINGLE-PILL, FEW TIMES PER WEEK
     Route: 048
  2. KEYTRUDA [Suspect]
     Active Substance: PEMBROLIZUMAB
     Indication: SQUAMOUS CELL CARCINOMA
     Dosage: UNK

REACTIONS (2)
  - Impaired healing [Unknown]
  - Immunodeficiency [Unknown]
